FAERS Safety Report 9844465 (Version 2)
Quarter: 2014Q1

REPORT INFORMATION
  Report Type: Report from Study
  Country: CA (occurrence: CA)
  Receive Date: 20140127
  Receipt Date: 20140325
  Transmission Date: 20141002
  Serious: Yes (Hospitalization)
  Sender: FDA-Public Use
  Company Number: CA-SHIRE-ALL1-2014-00472

PATIENT
  Age: 59 Year
  Sex: Female
  Weight: 69.2 kg

DRUGS (2)
  1. 489 (LISDEXAMFETAMINE DIMESYLATE) [Suspect]
     Indication: MAJOR DEPRESSION
     Dosage: 30 MG, 1X/DAY:QD
     Route: 048
     Dates: start: 20130628, end: 20140101
  2. ESCITALOPRAM OXALATE [Suspect]
     Indication: DEPRESSION
     Dosage: UNK, UNKNOWN
     Route: 048
     Dates: start: 199909

REACTIONS (1)
  - Suicidal ideation [Recovered/Resolved]
